FAERS Safety Report 8202272-4 (Version None)
Quarter: 2012Q1

REPORT INFORMATION
  Report Type: 
  Country: None (occurrence: None)
  Receive Date: 20120312
  Receipt Date: 20120302
  Transmission Date: 20120608
  Serious: Yes (Other)
  Sender: FDA-Public Use
  Company Number: US-BAYER-2011-095402

PATIENT
  Age: 37 Year
  Sex: Female
  Weight: 84 kg

DRUGS (8)
  1. PROMETHAZINE [Concomitant]
  2. MORPHINE SULFATE [Concomitant]
     Indication: PAIN
  3. MECLIZINE [Concomitant]
  4. YAZ [Suspect]
     Indication: CONTRACEPTION
     Dosage: UNK
     Dates: start: 20080922, end: 20090901
  5. HYDROCODONE BITARTRATE [Concomitant]
  6. MULTI-VITAMIN [Concomitant]
  7. MORPHINE SULFATE [Concomitant]
     Indication: SLEEP DISORDER
     Dosage: UNK
     Dates: start: 20080101, end: 20110101
  8. VITAMIN B-12 [Concomitant]

REACTIONS (7)
  - INJURY [None]
  - CHOLECYSTITIS CHRONIC [None]
  - ABDOMINAL PAIN [None]
  - ABDOMINAL PAIN UPPER [None]
  - PANCREATITIS CHRONIC [None]
  - CHOLECYSTITIS [None]
  - SPHINCTER OF ODDI DYSFUNCTION [None]
